FAERS Safety Report 10195755 (Version 1)
Quarter: 2014Q2

REPORT INFORMATION
  Report Type: Spontaneous
  Country: ID (occurrence: ID)
  Receive Date: 20140527
  Receipt Date: 20140527
  Transmission Date: 20141212
  Serious: Yes (Hospitalization)
  Sender: FDA-Public Use
  Company Number: ID-009507513-1405IDN012854

PATIENT
  Age: 54 Year
  Sex: Male

DRUGS (1)
  1. JANUMET [Suspect]
     Dosage: 2X1
     Route: 048
     Dates: end: 20140522

REACTIONS (1)
  - Speech disorder [Unknown]
